FAERS Safety Report 9458214 (Version 1)
Quarter: 2013Q3

REPORT INFORMATION
  Report Type: Spontaneous
  Country: US (occurrence: None)
  Receive Date: 20130812
  Receipt Date: 20130812
  Transmission Date: 20140515
  Serious: Yes (Disabling, Other)
  Sender: FDA-Public Use
  Company Number: None

PATIENT
  Age: 75 Year
  Sex: Male
  Weight: 76.2 kg

DRUGS (12)
  1. DONEPEZIL HCL [Suspect]
     Indication: PARKINSONISM
     Dosage: 10MG 60 TAB 1 TAB TWICE DAY BY MOUTH
     Route: 048
     Dates: start: 20110305, end: 20130721
  2. AMIODIPINE-BENAZEPRIL [Concomitant]
  3. BUSPAR [Concomitant]
  4. DIGOXIN [Concomitant]
  5. GLYBURIDE [Concomitant]
  6. METFORMIN HYDROCHLORIDE [Concomitant]
  7. NAMENDA [Concomitant]
  8. SIMVASTATIN [Concomitant]
  9. ASPIRIN [Concomitant]
  10. COQ-10 [Concomitant]
  11. D-3 [Concomitant]
  12. CENTRUM SILVER [Concomitant]

REACTIONS (3)
  - Macular degeneration [None]
  - Fall [None]
  - Hypoacusis [None]
